FAERS Safety Report 12713579 (Version 1)
Quarter: 2016Q3

REPORT INFORMATION
  Report Type: Spontaneous
  Country: IT (occurrence: IT)
  Receive Date: 20160903
  Receipt Date: 20160903
  Transmission Date: 20161109
  Serious: Yes (Other)
  Sender: FDA-Public Use
  Company Number: IT-SUN PHARMACEUTICAL INDUSTRIES LTD-2016R1-123306

PATIENT
  Age: 50 Year
  Sex: Male

DRUGS (3)
  1. COTRIMOXAZOLE [Suspect]
     Active Substance: SULFAMETHOXAZOLE\TRIMETHOPRIM
     Indication: MENINGITIS LISTERIA
     Dosage: UNK
     Route: 065
     Dates: start: 2014
  2. AMPICILLIN [Concomitant]
     Active Substance: AMPICILLIN
     Indication: MENINGITIS LISTERIA
     Dosage: 2 G, Q4H
     Route: 042
     Dates: start: 2014
  3. IMMUNOGLOBULINS [Concomitant]
     Active Substance: HUMAN IMMUNOGLOBULIN G
     Indication: MENINGITIS LISTERIA
     Dosage: UNK, DAILY
     Route: 042
     Dates: start: 2014

REACTIONS (2)
  - Gastrointestinal disorder [Unknown]
  - Leukopenia [Unknown]

NARRATIVE: CASE EVENT DATE: 2014
